FAERS Safety Report 25842315 (Version 1)
Quarter: 2025Q3

REPORT INFORMATION
  Report Type: Report from Study
  Country: US (occurrence: US)
  Receive Date: 20250924
  Receipt Date: 20250924
  Transmission Date: 20251020
  Serious: Yes (Hospitalization)
  Sender: EISAI
  Company Number: US-Eisai-EC-2025-196097

PATIENT
  Age: 69 Year
  Sex: Male
  Weight: 92.5 kg

DRUGS (21)
  1. LENVIMA [Suspect]
     Active Substance: LENVATINIB
     Indication: Hepatocellular carcinoma
     Route: 048
     Dates: start: 20250820, end: 20250827
  2. LENVIMA [Suspect]
     Active Substance: LENVATINIB
     Route: 048
     Dates: start: 202509, end: 202509
  3. LOSARTAN [Concomitant]
     Active Substance: LOSARTAN
  4. METFORMIN [Concomitant]
     Active Substance: METFORMIN HYDROCHLORIDE
  5. METOPROLOL [Concomitant]
     Active Substance: METOPROLOL
  6. SUCCINATE [Concomitant]
  7. METRONIDAZOLE [Concomitant]
     Active Substance: METRONIDAZOLE
  8. MORPHINE SULFATE [Concomitant]
     Active Substance: MORPHINE SULFATE
  9. ONDANSETRON [Concomitant]
     Active Substance: ONDANSETRON
  10. PANTOPRAZOLE [Concomitant]
     Active Substance: PANTOPRAZOLE
  11. PHOSPHORUS [Concomitant]
     Active Substance: PHOSPHORUS
  12. PROCHLORPERAZINE [Concomitant]
     Active Substance: PROCHLORPERAZINE
  13. ROSUVASTATIN [Concomitant]
     Active Substance: ROSUVASTATIN
  14. XIFAXAN [Concomitant]
     Active Substance: RIFAXIMIN
  15. ALBUTEROL SULFATE [Concomitant]
     Active Substance: ALBUTEROL SULFATE
  16. ENBREL [Concomitant]
     Active Substance: ETANERCEPT
  17. GLIMEPIRIDE [Concomitant]
     Active Substance: GLIMEPIRIDE
  18. IBUPROFEN [Concomitant]
     Active Substance: IBUPROFEN
  19. LACTULOSE [Concomitant]
     Active Substance: LACTULOSE
  20. LEVOTHYROXINE [Concomitant]
     Active Substance: LEVOTHYROXINE
  21. EZETIMIBE [Concomitant]
     Active Substance: EZETIMIBE
     Indication: Product used for unknown indication

REACTIONS (5)
  - Fall [Recovering/Resolving]
  - Spinal fracture [Recovering/Resolving]
  - Post procedural infection [Recovering/Resolving]
  - Blood pressure diastolic increased [Recovered/Resolved]
  - Impaired healing [Recovering/Resolving]

NARRATIVE: CASE EVENT DATE: 20250801
